FAERS Safety Report 5355351-3 (Version None)
Quarter: 2007Q2

REPORT INFORMATION
  Report Type: 
  Country: None (occurrence: None)
  Receive Date: 20070601
  Receipt Date: 20070322
  Transmission Date: 20071010
  Serious: Yes (Hospitalization)
  Sender: FDA-Public Use
  Company Number: 153060USA

PATIENT
  Age: 65 Year
  Sex: Male
  Weight: 74.8435 kg

DRUGS (3)
  1. AZILECT [Suspect]
     Dosage: 1 MG (1 MG,1 IN 1 D),ORAL
     Route: 048
     Dates: start: 20060801
  2. CITALOPRAM HYDROBROMIDE [Suspect]
     Dosage: PRN (10 MG)
     Dates: start: 20060922, end: 20061009
  3. SINEMET [Concomitant]

REACTIONS (7)
  - AGITATION [None]
  - BLOOD PRESSURE [None]
  - BLOOD PRESSURE INCREASED [None]
  - INSOMNIA [None]
  - PALPITATIONS [None]
  - PANIC ATTACK [None]
  - TACHYCARDIA [None]
